FAERS Safety Report 18375483 (Version 1)
Quarter: 2020Q4

REPORT INFORMATION
  Report Type: Spontaneous
  Country: US (occurrence: US)
  Receive Date: 20201012
  Receipt Date: 20201012
  Transmission Date: 20210114
  Serious: No
  Sender: FDA-Public Use
  Company Number: None

PATIENT
  Age: 70 Year
  Sex: Male
  Weight: 68 kg

DRUGS (2)
  1. REMDESIVIR. [Suspect]
     Active Substance: REMDESIVIR
     Indication: COVID-19 PNEUMONIA
     Dosage: ?          OTHER FREQUENCY:ONCE;?
     Route: 042
     Dates: start: 20201001, end: 20201002
  2. INSULIN LISPRO (HUMALOG) 10 UNITS [Concomitant]
     Dates: start: 20201001, end: 20201002

REACTIONS (2)
  - Transaminases increased [None]
  - Hepatic enzyme increased [None]

NARRATIVE: CASE EVENT DATE: 20201002
